FAERS Safety Report 9018399 (Version 1)
Quarter: 2013Q1

REPORT INFORMATION
  Report Type: Spontaneous
  Country: US (occurrence: US)
  Receive Date: 20130118
  Receipt Date: 20130118
  Transmission Date: 20140127
  Serious: No
  Sender: FDA-Public Use
  Company Number: US-PFIZER INC-2013022474

PATIENT
  Age: 64 Year
  Sex: Female

DRUGS (5)
  1. ATORVASTATIN CALCIUM [Suspect]
     Indication: BLOOD CHOLESTEROL ABNORMAL
     Dosage: 180 MG, DAILY
     Dates: start: 2012
  2. METOPROLOL [Concomitant]
     Indication: PALPITATIONS
     Dosage: 50 MG, UNK
  3. COZAAR [Concomitant]
     Indication: BLOOD PRESSURE ABNORMAL
     Dosage: 50 MG, DAILY
  4. BABY ASPIRIN [Concomitant]
     Indication: ANTICOAGULANT THERAPY
     Dosage: 81 MG, DAILY
  5. ZYLOPRIM [Concomitant]
     Indication: RENAL DISORDER
     Dosage: 100 MG, UNK

REACTIONS (1)
  - Drug ineffective [Unknown]
